FAERS Safety Report 18806796 (Version 13)
Quarter: 2022Q4

REPORT INFORMATION
  Report Type: Spontaneous
  Country: CA (occurrence: CA)
  Receive Date: 20210129
  Receipt Date: 20221202
  Transmission Date: 20230113
  Serious: Yes (Other)
  Sender: FDA-Public Use
  Company Number: CA-CELLTRION INC.-2019CA028051

PATIENT

DRUGS (34)
  1. INFLECTRA [Suspect]
     Active Substance: INFLIXIMAB-DYYB
     Indication: Colitis ulcerative
     Dosage: 400 MG, 0, 2, 6, THEN EVERY 8 WEEKS, Q0
     Route: 042
     Dates: start: 20190910, end: 20190910
  2. INFLECTRA [Suspect]
     Active Substance: INFLIXIMAB-DYYB
     Dosage: 400 MG, 0, 2, 6, THEN EVERY 8 WEEKS, Q2
     Route: 042
     Dates: start: 20190926, end: 20190926
  3. INFLECTRA [Suspect]
     Active Substance: INFLIXIMAB-DYYB
     Dosage: 400 MG, 0, 2, 6, THEN EVERY 8 WEEKS, Q6
     Route: 042
     Dates: start: 20191025, end: 20191025
  4. INFLECTRA [Suspect]
     Active Substance: INFLIXIMAB-DYYB
     Dosage: 400 MG, EVERY 8 WEEKS (EVERY 8 WEEK)
     Route: 042
     Dates: start: 20191219, end: 20201201
  5. INFLECTRA [Suspect]
     Active Substance: INFLIXIMAB-DYYB
     Dosage: 400 MG, EVERY 8 WEEKS
     Route: 042
     Dates: start: 20200219
  6. INFLECTRA [Suspect]
     Active Substance: INFLIXIMAB-DYYB
     Dosage: 400 MG, EVERY 8 WEEKS
     Route: 042
     Dates: start: 20200608
  7. INFLECTRA [Suspect]
     Active Substance: INFLIXIMAB-DYYB
     Dosage: 400 MG, EVERY 8 WEEKS
     Route: 042
     Dates: start: 20200811
  8. INFLECTRA [Suspect]
     Active Substance: INFLIXIMAB-DYYB
     Dosage: 400 MG, EVERY 8 WEEKS
     Route: 042
     Dates: start: 20201006
  9. INFLECTRA [Suspect]
     Active Substance: INFLIXIMAB-DYYB
     Dosage: 400 MG, EVERY 8 WEEKS
     Route: 042
     Dates: start: 20201006
  10. INFLECTRA [Suspect]
     Active Substance: INFLIXIMAB-DYYB
     Dosage: 400 MG,   EVERY 8 WEEKS
     Route: 042
     Dates: start: 20201006
  11. INFLECTRA [Suspect]
     Active Substance: INFLIXIMAB-DYYB
     Dosage: 400 MG, EVERY 8 WEEKS
     Route: 042
     Dates: start: 20201201
  12. INFLECTRA [Suspect]
     Active Substance: INFLIXIMAB-DYYB
     Dosage: 400 MG RE-INDUCTION AT WEEKS 0, 2, 6
     Route: 042
     Dates: start: 20210108, end: 20210218
  13. INFLECTRA [Suspect]
     Active Substance: INFLIXIMAB-DYYB
     Dosage: 400 MG REINDUCTION EVERY (Q) 0, 2, 6 WEEKS, THEN EVERY 4 WEEKS
     Route: 042
     Dates: start: 20210108
  14. INFLECTRA [Suspect]
     Active Substance: INFLIXIMAB-DYYB
     Dosage: 400 MG REINDUCTION EVERY (Q) 0, 2, 6 WEEKS, THEN EVERY 4 WEEKS
     Route: 042
     Dates: start: 20210108
  15. INFLECTRA [Suspect]
     Active Substance: INFLIXIMAB-DYYB
     Dosage: 400 MG REINDUCTION EVERY (Q) 0, 2, 6 WEEKS, THEN EVERY 4 WEEKS
     Route: 042
     Dates: start: 20210108
  16. INFLECTRA [Suspect]
     Active Substance: INFLIXIMAB-DYYB
     Dosage: 400 MG, EVERY 4 WEEKS, Q0 RE -INDUCTION
     Route: 042
     Dates: start: 20210108
  17. INFLECTRA [Suspect]
     Active Substance: INFLIXIMAB-DYYB
     Dosage: 400 MG  EVERY 4WEEKS,
     Route: 042
     Dates: start: 20210120
  18. INFLECTRA [Suspect]
     Active Substance: INFLIXIMAB-DYYB
     Dosage: 400 MG  EVERY 4 WEEKS
     Route: 042
     Dates: start: 20210218
  19. INFLECTRA [Suspect]
     Active Substance: INFLIXIMAB-DYYB
     Dosage: 400 MG, EVERY 4 WEEKS
     Route: 042
     Dates: start: 20210317
  20. INFLECTRA [Suspect]
     Active Substance: INFLIXIMAB-DYYB
     Dosage: 400 MG, EVERY 4 WEEKS
     Route: 042
     Dates: start: 20210414
  21. INFLECTRA [Suspect]
     Active Substance: INFLIXIMAB-DYYB
     Dosage: 400 MG, EVERY 4 WEEKS
     Route: 042
     Dates: start: 20210811
  22. INFLECTRA [Suspect]
     Active Substance: INFLIXIMAB-DYYB
     Dosage: 400 MG, EVERY 4 WEEKS
     Route: 042
     Dates: start: 20210909
  23. INFLECTRA [Suspect]
     Active Substance: INFLIXIMAB-DYYB
     Dosage: 400 MG ,EVERY 4 WEEKS
     Route: 042
     Dates: start: 20211006
  24. INFLECTRA [Suspect]
     Active Substance: INFLIXIMAB-DYYB
     Dosage: 400 MG ,EVERY 4 WEEKS
     Route: 042
     Dates: start: 20211103
  25. INFLECTRA [Suspect]
     Active Substance: INFLIXIMAB-DYYB
     Dosage: 400 MG ,EVERY 4 WEEKS
     Route: 042
     Dates: start: 20220104
  26. INFLECTRA [Suspect]
     Active Substance: INFLIXIMAB-DYYB
     Dosage: 400 MG ,EVERY 4 WEEKS
     Route: 042
     Dates: start: 20220210
  27. INFLECTRA [Suspect]
     Active Substance: INFLIXIMAB-DYYB
     Dosage: 400 MG ,EVERY 4 WEEKS
     Route: 042
     Dates: start: 20220308
  28. INFLECTRA [Suspect]
     Active Substance: INFLIXIMAB-DYYB
     Dosage: 400 MG ,EVERY 4 WEEKS
     Route: 042
     Dates: start: 20220404
  29. INFLECTRA [Suspect]
     Active Substance: INFLIXIMAB-DYYB
     Dosage: 400 MG ,EVERY 4 WEEKS
     Route: 042
     Dates: start: 20220505
  30. INFLECTRA [Suspect]
     Active Substance: INFLIXIMAB-DYYB
     Dosage: 400 MG ,EVERY 4 WEEKS
     Route: 042
     Dates: start: 20221025
  31. INFLECTRA [Suspect]
     Active Substance: INFLIXIMAB-DYYB
     Dosage: 400 MG ,EVERY 4 WEEKS
     Route: 042
     Dates: start: 20221123
  32. PREDNISONE [Concomitant]
     Active Substance: PREDNISONE
     Dosage: 1 DF, UNKNOWN DOSE
  33. SUBOXONE [Concomitant]
     Active Substance: BUPRENORPHINE HYDROCHLORIDE\NALOXONE HYDROCHLORIDE
     Dosage: UNK
     Dates: end: 2020
  34. SUBLOCADE [Concomitant]
     Active Substance: BUPRENORPHINE
     Dosage: 1 DF UNKNOWN DOSE
     Dates: start: 2020

REACTIONS (16)
  - Weight increased [Not Recovered/Not Resolved]
  - Off label use [Unknown]
  - Off label use [Unknown]
  - Off label use [Unknown]
  - Intentional product use issue [Unknown]
  - Inappropriate schedule of product administration [Unknown]
  - Infusion site extravasation [Unknown]
  - Condition aggravated [Recovered/Resolved]
  - Infusion site swelling [Recovered/Resolved]
  - Infusion site bruising [Recovered/Resolved]
  - Body temperature decreased [Unknown]
  - Weight decreased [Recovered/Resolved]
  - Blood pressure increased [Unknown]
  - Heart rate increased [Unknown]
  - Condition aggravated [Recovered/Resolved]
  - Drug level below therapeutic [Unknown]

NARRATIVE: CASE EVENT DATE: 20200811
